FAERS Safety Report 5382719-1 (Version None)
Quarter: 2007Q3

REPORT INFORMATION
  Report Type: 
  Country: None (occurrence: None)
  Receive Date: 20070702
  Receipt Date: 20070515
  Transmission Date: 20080115
  Serious: No
  Sender: FDA-Public Use
  Company Number: 2007PV032936

PATIENT
  Age: 73 Year
  Sex: Female

DRUGS (14)
  1. SYMLIN [Suspect]
     Indication: TYPE 2 DIABETES MELLITUS
     Dosage: 60 MCG;BID;SC
     Route: 058
     Dates: start: 20070427
  2. HUMULIN 70/30 [Concomitant]
  3. GLIPIZIDE [Concomitant]
  4. LISINOPRIL [Concomitant]
  5. METFORMIN HCL [Concomitant]
  6. LOTREL [Concomitant]
  7. LYRICA [Concomitant]
  8. SYNTHROID [Concomitant]
  9. CYCLOPHOSPHAMIDE [Concomitant]
  10. POTASSIUM CHLORIDE [Concomitant]
  11. FUROSEMIDE [Concomitant]
  12. CELEBREX [Concomitant]
  13. METAX [Concomitant]
  14. PREMARIN [Concomitant]

REACTIONS (3)
  - DIARRHOEA [None]
  - DIZZINESS [None]
  - FAECES DISCOLOURED [None]
